FAERS Safety Report 17195439 (Version 1)
Quarter: 2019Q4

REPORT INFORMATION
  Report Type: Spontaneous
  Country: US (occurrence: US)
  Receive Date: 20191224
  Receipt Date: 20191224
  Transmission Date: 20200122
  Serious: Yes (Other)
  Sender: FDA-Public Use
  Company Number: US-ROCHE-2501607

PATIENT
  Age: 68 Year
  Sex: Female
  Weight: 82.63 kg

DRUGS (4)
  1. LUCENTIS [Suspect]
     Active Substance: RANIBIZUMAB
     Dosage: 8 INJECTIONS
     Route: 050
     Dates: start: 201701, end: 201801
  2. LUCENTIS [Suspect]
     Active Substance: RANIBIZUMAB
     Dosage: 4 INJECTIONS
     Route: 050
     Dates: start: 201901
  3. LUCENTIS [Suspect]
     Active Substance: RANIBIZUMAB
     Indication: NEOVASCULAR AGE-RELATED MACULAR DEGENERATION
     Dosage: 12 INJECTIONS RECEIVED
     Route: 050
     Dates: start: 201601, end: 201701
  4. LUCENTIS [Suspect]
     Active Substance: RANIBIZUMAB
     Dosage: 6 INJECTIONS
     Route: 050
     Dates: start: 201801, end: 201901

REACTIONS (5)
  - Retinal haemorrhage [Unknown]
  - Dry age-related macular degeneration [Not Recovered/Not Resolved]
  - Floppy iris syndrome [Recovered/Resolved]
  - Ciliary body disorder [Unknown]
  - Cataract [Not Recovered/Not Resolved]

NARRATIVE: CASE EVENT DATE: 20191203
